FAERS Safety Report 4599815-9 (Version None)
Quarter: 2005Q1

REPORT INFORMATION
  Report Type: 
  Country: None (occurrence: None)
  Receive Date: 20050303
  Receipt Date: 20050221
  Transmission Date: 20050727
  Serious: Yes (Life-Threatening)
  Sender: FDA-Public Use
  Company Number: 141435USA

PATIENT
  Sex: Male

DRUGS (1)
  1. PHENYLEPHRINE [Suspect]
     Dosage: 10 MILLIGRAM ONCE INTRAVENOUS (NOS)
     Route: 042

REACTIONS (4)
  - CARDIAC ARREST [None]
  - CARDIO-RESPIRATORY ARREST [None]
  - MEDICATION ERROR [None]
  - PULMONARY OEDEMA [None]
